FAERS Safety Report 5928902-5 (Version None)
Quarter: 2008Q4

REPORT INFORMATION
  Report Type: 
  Country: None (occurrence: None)
  Receive Date: 20081024
  Receipt Date: 20081014
  Transmission Date: 20090506
  Serious: Yes (Other)
  Sender: FDA-Public Use
  Company Number: US-BAXTER-2008BH011045

PATIENT
  Age: 64 Year
  Sex: Male

DRUGS (5)
  1. EXTRANEAL [Suspect]
     Indication: RENAL FAILURE CHRONIC
     Route: 033
     Dates: start: 20060701
  2. INSULIN [Suspect]
     Indication: BLOOD GLUCOSE FALSE POSITIVE
     Dosage: DOSE UNIT:UNKNOWN
     Dates: start: 20080107, end: 20080107
  3. GLIPIZIDE [Concomitant]
     Indication: DRUG USE FOR UNKNOWN INDICATION
     Route: 065
  4. GLIPIZIDE [Concomitant]
     Route: 065
  5. DIANEAL [Concomitant]
     Indication: RENAL FAILURE CHRONIC
     Route: 033
     Dates: start: 20060301

REACTIONS (3)
  - BLOOD GLUCOSE FALSE POSITIVE [None]
  - DEVICE INTERACTION [None]
  - MEDICATION ERROR [None]
